FAERS Safety Report 10692803 (Version 1)
Quarter: 2015Q1

REPORT INFORMATION
  Report Type: Spontaneous
  Country: GB (occurrence: GB)
  Receive Date: 20150106
  Receipt Date: 20150106
  Transmission Date: 20150720
  Serious: Yes (Other)
  Sender: FDA-Public Use
  Company Number: GB-SA-2015SA000696

PATIENT
  Sex: Female

DRUGS (1)
  1. CEREZYME [Suspect]
     Active Substance: IMIGLUCERASE
     Dosage: EVERY 4 WEEKS DOSE:1600 UNIT(S)
     Route: 042

REACTIONS (4)
  - Staphylococcal infection [Unknown]
  - Mouth ulceration [Unknown]
  - Limb injury [Unknown]
  - Oral pain [Unknown]
